FAERS Safety Report 14499326 (Version 1)
Quarter: 2018Q1

REPORT INFORMATION
  Report Type: Spontaneous
  Country: US (occurrence: US)
  Receive Date: 20180207
  Receipt Date: 20180207
  Transmission Date: 20180509
  Serious: Yes (Other)
  Sender: FDA-Public Use
  Company Number: US-JAZZ-2017-US-011060

PATIENT
  Sex: Female

DRUGS (3)
  1. PRIALT [Suspect]
     Active Substance: ZICONOTIDE ACETATE
     Indication: BACK PAIN
     Dosage: UNKNOWN DOSE
     Route: 037
     Dates: start: 2015
  2. HORIZANT [Concomitant]
     Active Substance: GABAPENTIN ENACARBIL
     Indication: PAIN
  3. PRIALT [Suspect]
     Active Substance: ZICONOTIDE ACETATE
     Dosage: UNKNOWN DOSE
     Route: 037
     Dates: start: 2016

REACTIONS (7)
  - Suicidal ideation [Recovered/Resolved]
  - Depression [Recovered/Resolved]
  - Confusional state [Unknown]
  - Hallucination, tactile [Recovered/Resolved]
  - Hallucination, auditory [Recovered/Resolved]
  - Dysarthria [Recovered/Resolved]
  - Memory impairment [Recovered/Resolved]

NARRATIVE: CASE EVENT DATE: 2016
